FAERS Safety Report 8578445-8 (Version None)
Quarter: 2012Q3

REPORT INFORMATION
  Report Type: 
  Country: None (occurrence: None)
  Receive Date: 20120808
  Receipt Date: 20120801
  Transmission Date: 20120928
  Serious: Yes (Other)
  Sender: FDA-Public Use
  Company Number: GB-JNJFOC-20120700378

PATIENT
  Sex: Male
  Weight: 118 kg

DRUGS (2)
  1. HALOPERIDOL [Suspect]
     Indication: DELUSION
     Route: 048
     Dates: start: 20050101, end: 20050101
  2. HALOPERIDOL [Suspect]
     Route: 048
     Dates: end: 20060101

REACTIONS (2)
  - DRUG HYPERSENSITIVITY [None]
  - TRISMUS [None]
